FAERS Safety Report 20394471 (Version 1)
Quarter: 2022Q1

REPORT INFORMATION
  Report Type: Spontaneous
  Country: DE (occurrence: DE)
  Receive Date: 20220129
  Receipt Date: 20220129
  Transmission Date: 20220423
  Serious: Yes (Hospitalization)
  Sender: FDA-Public Use
  Company Number: DE-DCGMA-21196137

PATIENT
  Age: 75 Year
  Sex: Female

DRUGS (14)
  1. XARELTO [Interacting]
     Active Substance: RIVAROXABAN
     Indication: Product used for unknown indication
     Route: 048
  2. DICLOFENAC [Suspect]
     Active Substance: DICLOFENAC
     Dates: start: 20150701
  3. DICLOFENAC DIETHYLAMINE [Suspect]
     Active Substance: DICLOFENAC DIETHYLAMINE
     Dates: start: 20150701
  4. VALERIAN [Concomitant]
     Active Substance: VALERIAN
  5. FERROUS GLYCINE SULFATE [Concomitant]
     Active Substance: FERROUS GLYCINE SULFATE
     Dates: start: 201507
  6. PANTOPRAZOLE [Concomitant]
     Active Substance: PANTOPRAZOLE
  7. CHOLECALCIFEROL [Concomitant]
     Active Substance: CHOLECALCIFEROL
     Dosage: 1000 DF
  8. OXAZEPAM [Concomitant]
     Active Substance: OXAZEPAM
     Dates: start: 20150706
  9. TAVOR (LORAZEPAM) [Concomitant]
     Active Substance: LORAZEPAM
  10. ARCOXIA [Concomitant]
     Active Substance: ETORICOXIB
     Dates: end: 20150701
  11. SIMVASTATIN [Concomitant]
     Active Substance: SIMVASTATIN
     Dosage: 20 DF
  12. BISOPROLOL FUMARATE [Concomitant]
     Active Substance: BISOPROLOL FUMARATE
     Dosage: 2.5 DF
  13. EUTHYROX [Concomitant]
     Active Substance: LEVOTHYROXINE SODIUM
  14. ACETAMINOPHEN [Concomitant]
     Active Substance: ACETAMINOPHEN

REACTIONS (9)
  - Fatigue [Unknown]
  - Faeces discoloured [Unknown]
  - Circulatory collapse [Unknown]
  - Blood pressure immeasurable [Unknown]
  - Psychomotor retardation [Unknown]
  - Haemoglobin decreased [Unknown]
  - Asthenia [Unknown]
  - Labelled drug-drug interaction medication error [Unknown]
  - Product prescribing error [Unknown]

NARRATIVE: CASE EVENT DATE: 20150701
